FAERS Safety Report 8446185-1 (Version None)
Quarter: 2012Q2

REPORT INFORMATION
  Report Type: 
  Country: None (occurrence: None)
  Receive Date: 20120323
  Receipt Date: 20111117
  Transmission Date: 20120825
  Serious: Yes (Hospitalization, Other)
  Sender: FDA-Public Use
  Company Number: 163-21880-11091292

PATIENT
  Age: 84 Year
  Sex: Male
  Weight: 78.0187 kg

DRUGS (10)
  1. HYDREA [Concomitant]
  2. ASPIRIN [Concomitant]
  3. CYCLOBENZAPRINE [Concomitant]
  4. BISOPROLOL/HCTZ (BISELECT) [Concomitant]
  5. DEXAMETHASONE (DEXAMETHASONE) [Suspect]
     Indication: MULTIPLE MYELOMA
  6. REVLIMID [Suspect]
     Indication: MULTIPLE MYELOMA
     Dosage: 25 MG, DAILY FOR 21 DAYS, PO
     Route: 048
     Dates: start: 20110323
  7. AMLODIPINE/BENAZEPRIL (AMLODIPINE BESYLATE [Concomitant]
  8. ZOMETA [Concomitant]
  9. LEVOTHYROXINE SODIUM [Concomitant]
  10. OMEPRAZOLE [Concomitant]

REACTIONS (3)
  - BONE MARROW FAILURE [None]
  - FATIGUE [None]
  - DEEP VEIN THROMBOSIS [None]
